FAERS Safety Report 6870510-6 (Version None)
Quarter: 2010Q3

REPORT INFORMATION
  Report Type: 
  Country: None (occurrence: None)
  Receive Date: 20100723
  Receipt Date: 20100716
  Transmission Date: 20110219
  Serious: No
  Sender: FDA-Public Use
  Company Number: US-BIOGENIDEC-2010BI024096

PATIENT
  Age: 36 Year
  Sex: Female

DRUGS (2)
  1. AVONEX [Suspect]
     Indication: MULTIPLE SCLEROSIS
     Route: 030
     Dates: start: 20090728
  2. AVONEX [Suspect]
     Route: 030
     Dates: start: 20031119, end: 20070401

REACTIONS (6)
  - COORDINATION ABNORMAL [None]
  - DYSGRAPHIA [None]
  - MULTIPLE SCLEROSIS [None]
  - MULTIPLE SCLEROSIS RELAPSE [None]
  - PERONEAL NERVE PALSY [None]
  - SENSATION OF HEAVINESS [None]
